FAERS Safety Report 5692995-3 (Version None)
Quarter: 2008Q2

REPORT INFORMATION
  Report Type: 
  Country: None (occurrence: None)
  Receive Date: 20080401
  Receipt Date: 20080318
  Transmission Date: 20081010
  Serious: Yes (Other)
  Sender: FDA-Public Use
  Company Number: 220001E08FRA

PATIENT
  Age: 13 Year
  Sex: Female

DRUGS (1)
  1. SAIZEN [Suspect]
     Dosage: 1.8 MG, 1 IN 1 DAYS, SUBCUTANEOUS
     Route: 058

REACTIONS (1)
  - ANGIOMYOLIPOMA [None]
